FAERS Safety Report 15296568 (Version 2)
Quarter: 2018Q3

REPORT INFORMATION
  Report Type: Spontaneous
  Country: GB (occurrence: GB)
  Receive Date: 20180820
  Receipt Date: 20180820
  Transmission Date: 20181010
  Serious: Yes (Life-Threatening, Other)
  Sender: FDA-Public Use
  Company Number: PHHY2018GB039347

PATIENT
  Age: 12 Year

DRUGS (9)
  1. CYCLOPHOSPHAMIDE. [Suspect]
     Active Substance: CYCLOPHOSPHAMIDE
     Indication: PRIMARY IMMUNODEFICIENCY SYNDROME
     Route: 065
  2. MELPHALAN. [Suspect]
     Active Substance: MELPHALAN
     Indication: BONE MARROW CONDITIONING REGIMEN
     Dosage: 140 MG/M2, UNK
     Route: 065
  3. CYCLOPHOSPHAMIDE. [Suspect]
     Active Substance: CYCLOPHOSPHAMIDE
     Indication: BONE MARROW CONDITIONING REGIMEN
  4. CICLOSPORIN [Suspect]
     Active Substance: CYCLOSPORINE
     Indication: PROPHYLAXIS AGAINST GRAFT VERSUS HOST DISEASE
     Route: 065
  5. FLUDARABINE [Suspect]
     Active Substance: FLUDARABINE PHOSPHATE
     Indication: BONE MARROW CONDITIONING REGIMEN
     Dosage: 150 MG/M2, UNK
     Route: 065
  6. BUSULFAN. [Suspect]
     Active Substance: BUSULFAN
     Indication: BONE MARROW CONDITIONING REGIMEN
     Route: 065
  7. ALEMTUZUMAB [Suspect]
     Active Substance: ALEMTUZUMAB
     Indication: PRIMARY IMMUNODEFICIENCY SYNDROME
     Dosage: 1 MG/KG, UNK
     Route: 065
  8. ALEMTUZUMAB [Suspect]
     Active Substance: ALEMTUZUMAB
     Indication: BONE MARROW CONDITIONING REGIMEN
  9. METHOTREXATE. [Suspect]
     Active Substance: METHOTREXATE
     Indication: PROPHYLAXIS AGAINST GRAFT VERSUS HOST DISEASE
     Route: 065

REACTIONS (4)
  - Acute myeloid leukaemia [Unknown]
  - Renal cell carcinoma [Unknown]
  - Immune thrombocytopenic purpura [Unknown]
  - Off label use [Unknown]
